FAERS Safety Report 9145562 (Version 1)
Quarter: 2013Q1

REPORT INFORMATION
  Report Type: Spontaneous
  Country: US (occurrence: None)
  Receive Date: 20130207
  Receipt Date: 20130207
  Transmission Date: 20140127
  Serious: Yes (Death)
  Sender: FDA-Public Use
  Company Number: 2013020130

PATIENT
  Age: 31 Year
  Sex: Female

DRUGS (4)
  1. TORSEMIDE [Suspect]
     Route: 048
  2. CARVEDILOL (CARVEDILOL) [Suspect]
     Route: 048
  3. DILTIAZEM [Suspect]
     Route: 048
  4. AMLODIPINE (AMLODIPINE) [Suspect]
     Route: 048

REACTIONS (1)
  - Completed suicide [None]
